FAERS Safety Report 23547482 (Version 1)
Quarter: 2024Q1

REPORT INFORMATION
  Report Type: Spontaneous
  Country: BE (occurrence: BE)
  Receive Date: 20240221
  Receipt Date: 20240221
  Transmission Date: 20240410
  Serious: Yes (Hospitalization, Other)
  Sender: FDA-Public Use
  Company Number: BE-ViiV Healthcare Limited-BE2024GSK021809

PATIENT

DRUGS (2)
  1. DOLUTEGRAVIR [Suspect]
     Active Substance: DOLUTEGRAVIR
     Indication: HIV infection
     Dosage: UNK
  2. LAMIVUDINE [Concomitant]
     Active Substance: LAMIVUDINE
     Indication: HIV infection
     Dosage: UNK

REACTIONS (19)
  - Delusion [Recovered/Resolved]
  - Catatonia [Recovered/Resolved]
  - Psychotic disorder [Recovered/Resolved]
  - Sensory disturbance [Not Recovered/Not Resolved]
  - Peripheral sensory neuropathy [Recovering/Resolving]
  - Peripheral motor neuropathy [Recovering/Resolving]
  - Hallucination [Recovered/Resolved]
  - Suicide attempt [Recovered/Resolved]
  - Dyskinesia [Unknown]
  - Hallucination, visual [Recovered/Resolved]
  - Hallucination, auditory [Recovered/Resolved]
  - Insomnia [Recovered/Resolved]
  - Behaviour disorder [Recovered/Resolved]
  - Stupor [Unknown]
  - Agitation [Recovered/Resolved]
  - Encephalopathy [Unknown]
  - Disorganised speech [Recovered/Resolved]
  - Suicidal ideation [Recovered/Resolved]
  - Depression [Recovered/Resolved]
